FAERS Safety Report 20615960 (Version 2)
Quarter: 2022Q1

REPORT INFORMATION
  Report Type: Spontaneous
  Country: US (occurrence: US)
  Receive Date: 20220321
  Receipt Date: 20220331
  Transmission Date: 20220423
  Serious: No
  Sender: FDA-Public Use
  Company Number: US-ORGANON-O2203USA000663

PATIENT
  Age: 31 Year
  Sex: Female

DRUGS (2)
  1. GANIRELIX ACETATE [Suspect]
     Active Substance: GANIRELIX ACETATE
     Dosage: 250 MICROGRAM/0.5 MILLILITER,ONE INJECTION DAILY
  2. GANIRELIX ACETATE [Suspect]
     Active Substance: GANIRELIX ACETATE
     Dosage: 250 MICROGRAM/0.5 MILLILITER,ONE INJECTION DAILY

REACTIONS (5)
  - Needle issue [Unknown]
  - Needle issue [Unknown]
  - Product dose omission issue [Unknown]
  - Poor quality device used [Unknown]
  - No adverse event [Unknown]

NARRATIVE: CASE EVENT DATE: 20220302
